FAERS Safety Report 9834995 (Version 1)
Quarter: 2014Q1

REPORT INFORMATION
  Report Type: Spontaneous
  Country: BR (occurrence: BR)
  Receive Date: 20140122
  Receipt Date: 20140122
  Transmission Date: 20141002
  Serious: Yes (Hospitalization)
  Sender: FDA-Public Use
  Company Number: BR-PFIZER INC-2014018341

PATIENT
  Age: 75 Year
  Sex: Male

DRUGS (6)
  1. ATENOLOL [Suspect]
     Dosage: 25 MG, DAILY
     Route: 048
     Dates: start: 20130403
  2. BRILINTA [Suspect]
     Dosage: 90 MG, 2X/DAY
     Route: 048
     Dates: start: 20130403
  3. SUSTRATE [Concomitant]
     Indication: CARDIAC DISORDER
     Dosage: UNK
     Route: 048
     Dates: start: 20130403
  4. LIPITOR [Concomitant]
     Dosage: 20 MG, DAILY
     Route: 048
     Dates: start: 20130403
  5. ASPIRINA [Concomitant]
     Indication: HAEMODILUTION
     Dosage: 100 MG, DAILY
     Route: 048
     Dates: start: 20130403
  6. ULTRAVATE [Concomitant]
     Indication: OCULAR HYPERTENSION
     Dosage: UNK
     Route: 065

REACTIONS (1)
  - Retinal detachment [Recovered/Resolved]
